FAERS Safety Report 24019105 (Version 2)
Quarter: 2024Q2

REPORT INFORMATION
  Report Type: Spontaneous
  Country: US (occurrence: US)
  Receive Date: 20240627
  Receipt Date: 20240627
  Transmission Date: 20240716
  Serious: Yes (Death, Hospitalization)
  Sender: FDA-Public Use
  Company Number: US-ROCHE-10000003751

PATIENT
  Age: 85 Year
  Sex: Male

DRUGS (1)
  1. TNKASE [Suspect]
     Active Substance: TENECTEPLASE
     Indication: Ischaemic stroke
     Dosage: SINGLE DOSE
     Route: 042
     Dates: start: 20240504, end: 20240504

REACTIONS (3)
  - General physical health deterioration [Fatal]
  - Haemorrhagic transformation stroke [Unknown]
  - Off label use [Unknown]

NARRATIVE: CASE EVENT DATE: 20240505
